FAERS Safety Report 20805000 (Version 1)
Quarter: 2022Q2

REPORT INFORMATION
  Report Type: Spontaneous
  Country: US (occurrence: US)
  Receive Date: 20220509
  Receipt Date: 20220509
  Transmission Date: 20220721
  Serious: Yes (Other)
  Sender: FDA-Public Use
  Company Number: US-BoehringerIngelheim-2022-BI-169137

PATIENT
  Age: 38 Year
  Sex: Male

DRUGS (1)
  1. JARDIANCE [Suspect]
     Active Substance: EMPAGLIFLOZIN
     Indication: Type 2 diabetes mellitus
     Dates: start: 2017

REACTIONS (4)
  - Gangrene [Not Recovered/Not Resolved]
  - Infection [Unknown]
  - Infertility male [Not Recovered/Not Resolved]
  - Orchitis [Unknown]

NARRATIVE: CASE EVENT DATE: 20170101
